FAERS Safety Report 9911228 (Version 2)
Quarter: 2014Q1

REPORT INFORMATION
  Report Type: Spontaneous
  Country: IE (occurrence: IE)
  Receive Date: 20140219
  Receipt Date: 20140219
  Transmission Date: 20141002
  Serious: Yes (Hospitalization, Other)
  Sender: FDA-Public Use
  Company Number: US-ASTRAZENECA-2014SE04088

PATIENT
  Age: 137 Day
  Sex: Male

DRUGS (5)
  1. SYNAGIS [Suspect]
     Indication: OSTEOGENESIS IMPERFECTA
     Route: 030
     Dates: start: 20131017
  2. SYNAGIS [Suspect]
     Indication: OSTEOGENESIS IMPERFECTA
     Route: 030
     Dates: start: 20140206
  3. LOSEC [Concomitant]
     Indication: PRODUCT USED FOR UNKNOWN INDICATION
  4. VITAMIN D3 [Concomitant]
     Indication: PRODUCT USED FOR UNKNOWN INDICATION
  5. LACTULOSE [Concomitant]
     Indication: PRODUCT USED FOR UNKNOWN INDICATION

REACTIONS (2)
  - Bronchiolitis [Recovered/Resolved]
  - Cough [Recovered/Resolved]
